FAERS Safety Report 9103921 (Version 3)
Quarter: 2013Q3

REPORT INFORMATION
  Report Type: Spontaneous
  Country: NO (occurrence: NO)
  Receive Date: 20130219
  Receipt Date: 20130831
  Transmission Date: 20140515
  Serious: Yes (Other)
  Sender: FDA-Public Use
  Company Number: NO-JNJFOC-20130208348

PATIENT
  Age: 47 Year
  Sex: Female

DRUGS (1)
  1. NICORETTE FRUITMINT [Suspect]
     Indication: SMOKING CESSATION THERAPY
     Dosage: 8 YEARS AGO
     Route: 048

REACTIONS (2)
  - Intentional drug misuse [Unknown]
  - Nicotine dependence [Not Recovered/Not Resolved]
